FAERS Safety Report 4460128-7 (Version None)
Quarter: 2004Q3

REPORT INFORMATION
  Report Type: 
  Country: None (occurrence: None)
  Receive Date: 20040923
  Receipt Date: 20040907
  Transmission Date: 20050211
  Serious: Yes (Hospitalization)
  Sender: FDA-Public Use
  Company Number: 200698

PATIENT
  Age: 54 Year
  Sex: Male
  Weight: 121.1104 kg

DRUGS (12)
  1. AVONEX [Suspect]
     Indication: MULTIPLE SCLEROSIS
     Dosage: 30 MCG QW IM
     Route: 030
     Dates: start: 19970101, end: 20030901
  2. AVONEX [Suspect]
     Indication: MULTIPLE SCLEROSIS
     Dosage: 30 MCG QW IM
     Route: 030
     Dates: start: 20030901
  3. TRAZODONE HCL [Concomitant]
  4. ZOCOR [Concomitant]
  5. THYROID TAB [Concomitant]
  6. FENTA-TRIAMTERENE HCTZ [Concomitant]
  7. FELODIPINE [Concomitant]
  8. CLONAZEPAM [Concomitant]
  9. NAPROSYN [Concomitant]
  10. POTASSIUM CHLORIDE [Concomitant]
  11. SIMVASTATIN [Concomitant]
  12. TESTOSTERONE [Concomitant]

REACTIONS (8)
  - ARTHRALGIA [None]
  - CATARACT [None]
  - CONDITION AGGRAVATED [None]
  - HYPERHIDROSIS [None]
  - INFLUENZA LIKE ILLNESS [None]
  - OSTEOARTHRITIS [None]
  - POSTOPERATIVE FEVER [None]
  - TEMPERATURE INTOLERANCE [None]
